FAERS Safety Report 8217785-9 (Version None)
Quarter: 2012Q1

REPORT INFORMATION
  Report Type: 
  Country: None (occurrence: None)
  Receive Date: 20120319
  Receipt Date: 20120308
  Transmission Date: 20120608
  Serious: Yes (Life-Threatening, Hospitalization)
  Sender: FDA-Public Use
  Company Number: GR-JNJFOC-20120305907

PATIENT
  Age: 80 Year
  Sex: Female

DRUGS (3)
  1. REMICADE [Suspect]
     Route: 042
     Dates: start: 20070101, end: 20110101
  2. CORTISONE ACETATE [Concomitant]
     Route: 065
  3. REMICADE [Suspect]
     Indication: TEMPORAL ARTERITIS
     Route: 042
     Dates: start: 20120214, end: 20120101

REACTIONS (3)
  - ARTHRALGIA [None]
  - MENINGITIS [None]
  - LISTERIA SEPSIS [None]
